FAERS Safety Report 4656705-0 (Version None)
Quarter: 2005Q2

REPORT INFORMATION
  Report Type: 
  Country: None (occurrence: None)
  Receive Date: 20050506
  Receipt Date: 20050429
  Transmission Date: 20051028
  Serious: Yes (Hospitalization)
  Sender: FDA-Public Use
  Company Number: 2005069106

PATIENT
  Sex: Female

DRUGS (1)
  1. BEXTRA [Suspect]
     Indication: ILL-DEFINED DISORDER
     Dosage: (40 MG) ORAL
     Route: 048
     Dates: start: 20030101

REACTIONS (4)
  - ABDOMINAL PAIN UPPER [None]
  - PYREXIA [None]
  - ULCER [None]
  - VOMITING [None]
